FAERS Safety Report 9073660 (Version 1)
Quarter: 2013Q1

REPORT INFORMATION
  Report Type: Report from Study
  Country: US (occurrence: US)
  Receive Date: 20130129
  Receipt Date: 20130129
  Transmission Date: 20140127
  Serious: Yes (Other)
  Sender: FDA-Public Use
  Company Number: US-ABBOTT-12P-163-0929148-00

PATIENT
  Age: 34 Year
  Sex: Female

DRUGS (5)
  1. HUMIRA 40 MG/ 0.8 ML PRE-FILLED SYRINGE [Suspect]
     Indication: RHEUMATOID ARTHRITIS
     Dates: start: 20110930
  2. AZITHROMYCIN [Interacting]
     Indication: SINUSITIS
     Dates: start: 20120418
  3. CORTICOSTEROID NOS [Interacting]
     Indication: SINUSITIS
     Route: 050
     Dates: start: 20120418, end: 20120418
  4. ZOLOFT [Concomitant]
     Indication: PRODUCT USED FOR UNKNOWN INDICATION
  5. AMBIEN [Concomitant]
     Indication: PRODUCT USED FOR UNKNOWN INDICATION

REACTIONS (4)
  - Dyspnoea [Unknown]
  - Sinusitis [Unknown]
  - Panic attack [Unknown]
  - Drug interaction [Unknown]
